FAERS Safety Report 17721476 (Version 1)
Quarter: 2020Q2

REPORT INFORMATION
  Report Type: Spontaneous
  Country: US (occurrence: US)
  Receive Date: 20200429
  Receipt Date: 20200429
  Transmission Date: 20200714
  Serious: Yes (Hospitalization, Other)
  Sender: FDA-Public Use
  Company Number: US-SUN PHARMACEUTICAL INDUSTRIES LTD-2020R1-244646

PATIENT
  Age: 61 Year
  Sex: Female

DRUGS (2)
  1. CARBOPLATIN. [Suspect]
     Active Substance: CARBOPLATIN
     Indication: NEOPLASM MALIGNANT
     Dosage: UNK
     Route: 042
  2. PACLITAXEL. [Suspect]
     Active Substance: PACLITAXEL
     Indication: NEOPLASM MALIGNANT
     Dosage: UNK
     Route: 042

REACTIONS (7)
  - Peripheral motor neuropathy [Recovering/Resolving]
  - Muscular weakness [Unknown]
  - Fall [Unknown]
  - Drug ineffective [Unknown]
  - Acute kidney injury [Unknown]
  - Neurological examination abnormal [Recovering/Resolving]
  - Facial paralysis [Recovering/Resolving]
